FAERS Safety Report 6062537-1 (Version None)
Quarter: 2009Q1

REPORT INFORMATION
  Report Type: 
  Country: None (occurrence: None)
  Receive Date: 20090129
  Receipt Date: 20090114
  Transmission Date: 20090719
  Serious: Yes (Hospitalization)
  Sender: FDA-Public Use
  Company Number: 2009S1000707

PATIENT
  Age: 37 Year
  Sex: Male
  Weight: 75 kg

DRUGS (4)
  1. PROPOFOL [Suspect]
     Indication: INDUCTION OF ANAESTHESIA
     Dosage: 2 MG/KG;
  2. FENTANYL-100 [Suspect]
     Indication: INDUCTION OF ANAESTHESIA
     Dosage: .25 MG;
  3. SEVOFLURANE [Suspect]
     Indication: MAINTENANCE OF ANAESTHESIA
  4. DICLOFENAC [Concomitant]

REACTIONS (3)
  - HAEMODIALYSIS [None]
  - HYPERTHERMIA MALIGNANT [None]
  - RHABDOMYOLYSIS [None]
